FAERS Safety Report 24179743 (Version 1)
Quarter: 2024Q3

REPORT INFORMATION
  Report Type: Spontaneous
  Country: US (occurrence: US)
  Receive Date: 20240806
  Receipt Date: 20240806
  Transmission Date: 20241016
  Serious: No
  Sender: GALDERMA
  Company Number: US-GALDERMA-US2024010825

PATIENT

DRUGS (8)
  1. PROACTIV MD ADAPALENE ACNE TREATMENT [Suspect]
     Active Substance: ADAPALENE
     Indication: Acne cystic
     Dosage: 1 DOSAGE FORM, EVERYDAY
     Route: 061
     Dates: start: 202405, end: 2024
  2. PROACTIV MD ADAPALENE ACNE TREATMENT [Suspect]
     Active Substance: ADAPALENE
     Dosage: 1 DOSAGE FORM, EVERY 2 DAYS
     Route: 061
     Dates: start: 2024
  3. Proactiv MD Ultra Gentle Cleanser [Concomitant]
     Indication: Acne cystic
     Dosage: 1 DOSAGE FORM, BID, 2 OR MORE TIMES A DAY
     Route: 061
     Dates: start: 202405, end: 2024
  4. Proactiv MD Ultra Gentle Cleanser [Concomitant]
     Dosage: 1 DOSAGE FORM, EVERY 2 DAYS
     Route: 061
     Dates: start: 2024
  5. COSMETICS [Concomitant]
     Active Substance: COSMETICS
     Indication: Acne cystic
     Dosage: 1 DOSAGE FORM, BID, 2 OR MORE TIMES A DAY
     Route: 061
     Dates: start: 202405, end: 2024
  6. COSMETICS [Concomitant]
     Active Substance: COSMETICS
     Dosage: 1 DOSAGE FORM, EVERY 2 DAYS
     Route: 061
     Dates: start: 2024
  7. COSMETICS [Concomitant]
     Active Substance: COSMETICS
     Indication: Acne cystic
     Dosage: 1 DOSAGE FORM, BID, 2
     Route: 061
     Dates: start: 202405, end: 2024
  8. COSMETICS [Concomitant]
     Active Substance: COSMETICS
     Dosage: 1 DOSAGE FORM, EVERY 2 DAYS
     Route: 061
     Dates: start: 2024

REACTIONS (5)
  - Dry skin [Not Recovered/Not Resolved]
  - Pain of skin [Not Recovered/Not Resolved]
  - Sensitive skin [Not Recovered/Not Resolved]
  - Product use issue [Recovered/Resolved]
  - Product use in unapproved indication [Recovered/Resolved]

NARRATIVE: CASE EVENT DATE: 20240501
